FAERS Safety Report 5347260-0 (Version None)
Quarter: 2007Q2

REPORT INFORMATION
  Report Type: 
  Country: None (occurrence: None)
  Receive Date: 20070509
  Receipt Date: 20060823
  Transmission Date: 20071010
  Serious: No
  Sender: FDA-Public Use
  Company Number: 460882

PATIENT
  Age: 54 Year
  Sex: Male
  Weight: 65.8 kg

DRUGS (2)
  1. FUZEON [Suspect]
     Indication: HIV INFECTION
     Dosage: SUBCUTANEOUS
     Route: 058
     Dates: start: 20050515
  2. CIDOFOVIR (CIDOFOVIR) [Suspect]
     Indication: CYTOMEGALOVIRUS CHORIORETINITIS
     Dates: start: 20041115, end: 20050815

REACTIONS (3)
  - INJECTION SITE REACTION [None]
  - RENAL FAILURE [None]
  - WEIGHT DECREASED [None]
